FAERS Safety Report 22325102 (Version 1)
Quarter: 2023Q2

REPORT INFORMATION
  Report Type: Spontaneous
  Country: US (occurrence: None)
  Receive Date: 20230513
  Receipt Date: 20230513
  Transmission Date: 20230721
  Serious: Yes (unspecified)
  Sender: FDA-Public Use
  Company Number: None

PATIENT
  Age: 54 Year
  Sex: Female
  Weight: 60.75 kg

DRUGS (6)
  1. HYDROCHLOROTHIAZIDE\TELMISARTAN [Suspect]
     Active Substance: HYDROCHLOROTHIAZIDE\TELMISARTAN
     Indication: Product used for unknown indication
     Dosage: OTHER QUANTITY : 1 TABLET(S);?FREQUENCY : DAILY;?
     Route: 048
     Dates: start: 20230214, end: 20230506
  2. ZINC [Concomitant]
     Active Substance: ZINC
  3. MAGNESIUM [Concomitant]
     Active Substance: MAGNESIUM
  4. VITAMIN D3 [Concomitant]
     Active Substance: CHOLECALCIFEROL
  5. POTASSIUM [Concomitant]
     Active Substance: POTASSIUM
  6. Quercetin/Bromelain [Concomitant]

REACTIONS (16)
  - Skin discolouration [None]
  - Head discomfort [None]
  - External counterpulsation [None]
  - Cold sweat [None]
  - Hyperhidrosis [None]
  - Vision blurred [None]
  - Cardiac flutter [None]
  - Chills [None]
  - Dehydration [None]
  - Thirst [None]
  - Dry skin [None]
  - Back pain [None]
  - Migraine [None]
  - Hypoaesthesia [None]
  - Ocular hyperaemia [None]
  - Blood pressure decreased [None]

NARRATIVE: CASE EVENT DATE: 20230215
